FAERS Safety Report 21315093 (Version 1)
Quarter: 2022Q3

REPORT INFORMATION
  Report Type: Spontaneous
  Country: US (occurrence: US)
  Receive Date: 20220909
  Receipt Date: 20220909
  Transmission Date: 20221026
  Serious: Yes (Hospitalization, Congenital Anomaly, Other)
  Sender: FDA-Public Use
  Company Number: US-TEVA-2022-US-2072609

PATIENT
  Age: 0 Year
  Sex: Male

DRUGS (2)
  1. OXYCODONE [Suspect]
     Active Substance: OXYCODONE
     Indication: Product used for unknown indication
     Route: 064
  2. SUBUTEX [Suspect]
     Active Substance: BUPRENORPHINE HYDROCHLORIDE
     Indication: Product used for unknown indication
     Route: 064

REACTIONS (22)
  - Drug withdrawal syndrome neonatal [Unknown]
  - Fever neonatal [Unknown]
  - Disturbance in attention [Not Recovered/Not Resolved]
  - Affective disorder [Not Recovered/Not Resolved]
  - Cognitive disorder [Not Recovered/Not Resolved]
  - Crying [Unknown]
  - Developmental delay [Unknown]
  - Attention deficit hyperactivity disorder [Unknown]
  - Pain [Unknown]
  - Musculoskeletal stiffness [Unknown]
  - Tremor neonatal [Unknown]
  - Sneezing [Unknown]
  - Grunting [Unknown]
  - Yawning [Unknown]
  - Insomnia [Unknown]
  - Anxiety [Unknown]
  - Speech disorder [Not Recovered/Not Resolved]
  - High-pitched crying [Unknown]
  - Hyperreflexia [Unknown]
  - Poor feeding infant [Unknown]
  - Poor weight gain neonatal [Unknown]
  - Foetal exposure during pregnancy [Unknown]

NARRATIVE: CASE EVENT DATE: 20180826
